FAERS Safety Report 4506051-0 (Version None)
Quarter: 2004Q4

REPORT INFORMATION
  Report Type: 
  Country: None (occurrence: None)
  Receive Date: 20041025
  Receipt Date: 20031117
  Transmission Date: 20050328
  Serious: Yes (Death)
  Sender: FDA-Public Use
  Company Number: US-JNJFOC-20030802446

PATIENT
  Age: 70 Year
  Sex: Female
  Weight: 49.8957 kg

DRUGS (1)
  1. REMICADE [Suspect]
     Indication: RHEUMATOID ARTHRITIS
     Dosage: 300 MG 3 IN INTRAVENOUS
     Route: 042
     Dates: start: 20010101, end: 20010101

REACTIONS (1)
  - TUBERCULOSIS [None]
